FAERS Safety Report 4916518-9 (Version None)
Quarter: 2006Q1

REPORT INFORMATION
  Report Type: 
  Country: None (occurrence: None)
  Receive Date: 20060220
  Receipt Date: 20040324
  Transmission Date: 20060701
  Serious: Yes (Hospitalization, Other)
  Sender: FDA-Public Use
  Company Number: PHHO2004JP04548

PATIENT
  Age: 77 Year
  Sex: Male
  Weight: 65 kg

DRUGS (4)
  1. ALLOPURINOL [Concomitant]
     Indication: HYPERURICAEMIA
     Dosage: 100MG
     Route: 048
     Dates: start: 20010421
  2. BEZATOL - SLOW RELEASE [Concomitant]
     Indication: HYPERCHOLESTEROLAEMIA
     Dosage: 400MG
     Dates: start: 19980221
  3. BUFFERIN [Concomitant]
     Indication: ANGINA PECTORIS
     Dosage: 81MG
     Route: 048
     Dates: start: 20010423
  4. DIOVAN [Suspect]
     Indication: HYPERTENSION
     Dosage: 40 MG, QD
     Route: 048
     Dates: start: 20030109

REACTIONS (9)
  - ASTHENIA [None]
  - ATRIAL FIBRILLATION [None]
  - ATRIAL FLUTTER [None]
  - ATRIOVENTRICULAR BLOCK SECOND DEGREE [None]
  - BRADYCARDIA [None]
  - CARDIAC FAILURE [None]
  - CEREBRAL INFARCTION [None]
  - DYSPNOEA [None]
  - HYPOTENSION [None]
